FAERS Safety Report 17876457 (Version 1)
Quarter: 2020Q2

REPORT INFORMATION
  Report Type: Spontaneous
  Country: US (occurrence: US)
  Receive Date: 20200609
  Receipt Date: 20200609
  Transmission Date: 20200714
  Serious: Yes (Hospitalization)
  Sender: FDA-Public Use
  Company Number: US-TEVA-2020-US-1245321

PATIENT
  Age: 66 Year
  Sex: Female

DRUGS (5)
  1. FELODIPINE. [Concomitant]
     Active Substance: FELODIPINE
     Route: 065
  2. ATORVASTATIN [Concomitant]
     Active Substance: ATORVASTATIN
     Route: 065
  3. METHOTREXATE. [Concomitant]
     Active Substance: METHOTREXATE
     Route: 065
  4. PREDNISONE. [Suspect]
     Active Substance: PREDNISONE
     Indication: RHEUMATOID ARTHRITIS
     Dosage: 5 MILLIGRAM DAILY;
     Route: 048
  5. ADALIMUMAB [Suspect]
     Active Substance: ADALIMUMAB
     Indication: RHEUMATOID ARTHRITIS
     Dosage: EVERY OTHER WEEK
     Route: 065

REACTIONS (3)
  - Optic neuritis [Recovering/Resolving]
  - Demyelination [Recovering/Resolving]
  - Unmasking of previously unidentified disease [Recovering/Resolving]
